FAERS Safety Report 5626458-8 (Version None)
Quarter: 2008Q1

REPORT INFORMATION
  Report Type: 
  Country: None (occurrence: None)
  Receive Date: 20080214
  Receipt Date: 20080204
  Transmission Date: 20080703
  Serious: Yes (Hospitalization)
  Sender: FDA-Public Use
  Company Number: CA-ELI_LILLY_AND_COMPANY-CA200802000853

PATIENT
  Sex: Male

DRUGS (5)
  1. FORTEO [Suspect]
     Indication: OSTEOPOROSIS
     Dosage: 20 UG, DAILY (1/D)
     Route: 058
     Dates: start: 20061111
  2. CALCIUM [Concomitant]
  3. VITAMIN D [Concomitant]
  4. COD-LIVER OIL [Concomitant]
  5. ESTER-C [Concomitant]

REACTIONS (2)
  - FALL [None]
  - RIB FRACTURE [None]
